FAERS Safety Report 7487523-6 (Version None)
Quarter: 2011Q1

REPORT INFORMATION
  Report Type: 
  Country: None (occurrence: None)
  Receive Date: 20110309
  Receipt Date: 20101117
  Transmission Date: 20110831
  Serious: No
  Sender: FDA-Public Use
  Company Number: 2010SP060880

PATIENT
  Age: 42 Year
  Sex: Female

DRUGS (8)
  1. SAPHRIS [Suspect]
     Indication: PRODUCT USED FOR UNKNOWN INDICATION
     Dosage: 10 MG; SL
     Route: 060
     Dates: start: 20101006
  2. OXYCODONE HCL [Concomitant]
  3. LAMOTRIGINE [Concomitant]
  4. MORPHINE SULFATE [Concomitant]
  5. FLUOXETINE HCL [Concomitant]
  6. AMITRIPTYLINE HCL [Concomitant]
  7. SKELAXIN [Concomitant]
  8. GABAPENTIN [Concomitant]

REACTIONS (1)
  - VOMITING [None]
